FAERS Safety Report 17537856 (Version 15)
Quarter: 2025Q3

REPORT INFORMATION
  Report Type: Report from Study
  Country: US (occurrence: US)
  Receive Date: 20200313
  Receipt Date: 20250801
  Transmission Date: 20251021
  Serious: Yes (Hospitalization, Other)
  Sender: TAKEDA
  Company Number: US-SHIRE-US202009326

PATIENT
  Age: 56 Year
  Sex: Male
  Weight: 82 kg

DRUGS (28)
  1. TEDUGLUTIDE [Suspect]
     Active Substance: TEDUGLUTIDE
     Indication: Short-bowel syndrome
     Dates: start: 20200226, end: 20200730
  2. TEDUGLUTIDE [Suspect]
     Active Substance: TEDUGLUTIDE
     Indication: Gastroenteritis
  3. TEDUGLUTIDE [Suspect]
     Active Substance: TEDUGLUTIDE
     Dosage: 0.22 MILLILITER, QD
  4. TEDUGLUTIDE [Suspect]
     Active Substance: TEDUGLUTIDE
     Dosage: 0.22 MILLILITER, QD
  5. TEDUGLUTIDE [Suspect]
     Active Substance: TEDUGLUTIDE
  6. TEDUGLUTIDE [Suspect]
     Active Substance: TEDUGLUTIDE
     Dosage: 2.19 MILLIGRAM, QD
  7. TEDUGLUTIDE [Suspect]
     Active Substance: TEDUGLUTIDE
     Dosage: 2.19 MILLIGRAM, QD
  8. TEDUGLUTIDE [Suspect]
     Active Substance: TEDUGLUTIDE
     Dosage: 0.22 MILLILITER, QD
  9. TEDUGLUTIDE [Suspect]
     Active Substance: TEDUGLUTIDE
     Dosage: 0.22 MILLILITER, QD
  10. TEDUGLUTIDE [Suspect]
     Active Substance: TEDUGLUTIDE
     Dosage: 0.22 MILLILITER, QD
  11. TEDUGLUTIDE [Suspect]
     Active Substance: TEDUGLUTIDE
     Dosage: 0.22 MILLILITER, QD
  12. TRAMADOL [Suspect]
     Active Substance: TRAMADOL
     Indication: Product used for unknown indication
  13. SODIUM CHLORIDE [Concomitant]
     Active Substance: SODIUM CHLORIDE
  14. VITAMIN A [Concomitant]
     Active Substance: VITAMIN A
  15. BUPRENORPHINE [Concomitant]
     Active Substance: BUPRENORPHINE
  16. ASPIRIN [Concomitant]
     Active Substance: ASPIRIN
  17. VITAMIN D3 [Concomitant]
     Active Substance: CHOLECALCIFEROL
  18. GABAPENTIN [Concomitant]
     Active Substance: GABAPENTIN
  19. HYDROXYCHLOROQUINE SULFATE [Concomitant]
     Active Substance: HYDROXYCHLOROQUINE SULFATE
  20. PREDNISONE [Concomitant]
     Active Substance: PREDNISONE
  21. POTASSIUM CHLORIDE [Concomitant]
     Active Substance: POTASSIUM CHLORIDE
     Indication: Product used for unknown indication
  22. RAMIPRIL [Concomitant]
     Active Substance: RAMIPRIL
  23. ADVIL [Concomitant]
     Active Substance: IBUPROFEN
  24. FENOFIBRATE [Concomitant]
     Active Substance: FENOFIBRATE
  25. VITAMIN D2 [Concomitant]
     Active Substance: ERGOCALCIFEROL
  26. VITAMIN B12 [Concomitant]
     Active Substance: CYANOCOBALAMIN
  27. METHOTREXATE [Concomitant]
     Active Substance: METHOTREXATE
  28. TPN [Concomitant]
     Active Substance: AMINO ACIDS\DEXTROSE\ELECTROLYTES NOS\SOYBEAN OIL

REACTIONS (22)
  - Pneumonia [Unknown]
  - Device related infection [Unknown]
  - Swelling [Unknown]
  - Weight increased [Unknown]
  - Diarrhoea [Recovering/Resolving]
  - Injection site vesicles [Unknown]
  - Contusion [Unknown]
  - Blood test abnormal [Unknown]
  - Pancreatic disorder [Unknown]
  - Abdominal discomfort [Unknown]
  - Weight decreased [Not Recovered/Not Resolved]
  - Device issue [Unknown]
  - Hypokinesia [Unknown]
  - Pain [Unknown]
  - Arthralgia [Not Recovered/Not Resolved]
  - Depression [Not Recovered/Not Resolved]
  - Wrong technique in product usage process [Unknown]
  - Inappropriate schedule of product administration [Unknown]
  - Product use issue [Unknown]
  - Product dose omission issue [Unknown]
  - Flatulence [Unknown]
  - Decreased appetite [Unknown]

NARRATIVE: CASE EVENT DATE: 20200730
